FAERS Safety Report 16782550 (Version 2)
Quarter: 2019Q4

REPORT INFORMATION
  Report Type: Report from Study
  Country: CA (occurrence: CA)
  Receive Date: 20190906
  Receipt Date: 20191003
  Transmission Date: 20200122
  Serious: Yes (Hospitalization, Other)
  Sender: FDA-Public Use
  Company Number: CA-REGENERON PHARMACEUTICALS, INC.-2019-51530

PATIENT

DRUGS (2)
  1. CEMIPLIMAB [Suspect]
     Active Substance: CEMIPLIMAB
     Indication: SQUAMOUS CELL CARCINOMA OF SKIN
     Dosage: UNK UNK, QCY
     Route: 042
     Dates: start: 20190814, end: 20190814
  2. CEMIPLIMAB [Suspect]
     Active Substance: CEMIPLIMAB
     Dosage: UNK UNK, QCY
     Route: 042
     Dates: start: 20190925, end: 20190925

REACTIONS (3)
  - Dyspnoea [Unknown]
  - Cardiac failure congestive [Not Recovered/Not Resolved]
  - Myocardial infarction [Not Recovered/Not Resolved]
